FAERS Safety Report 7906627-4 (Version None)
Quarter: 2011Q4

REPORT INFORMATION
  Report Type: 
  Country: None (occurrence: None)
  Receive Date: 20111110
  Receipt Date: 20111104
  Transmission Date: 20120403
  Serious: No
  Sender: FDA-Public Use
  Company Number: US-B.I. PHARMACEUTICALS,INC./RIDGEFIELD-2011-BP-25790BP

PATIENT
  Sex: Male

DRUGS (1)
  1. TRADJENTA [Suspect]

REACTIONS (5)
  - NOCTURNAL DYSPNOEA [None]
  - HYPERGLYCAEMIA [None]
  - ABDOMINAL DISCOMFORT [None]
  - TREMOR [None]
  - ASTHENIA [None]
